FAERS Safety Report 12552699 (Version 1)
Quarter: 2016Q3

REPORT INFORMATION
  Report Type: Spontaneous
  Country: US (occurrence: None)
  Receive Date: 20160712
  Receipt Date: 20160712
  Transmission Date: 20161109
  Serious: Yes (Life-Threatening, Hospitalization)
  Sender: FDA-Public Use
  Company Number: None

PATIENT
  Age: 63 Year
  Sex: Male
  Weight: 69.4 kg

DRUGS (1)
  1. LISINOPRIL. [Suspect]
     Active Substance: LISINOPRIL
     Indication: HYPERTENSION
     Dosage: LISINOPRIL?MG?EVERY DAY ?PO
     Route: 048
     Dates: start: 20101026, end: 20150826

REACTIONS (2)
  - Hypertensive crisis [None]
  - Acute kidney injury [None]

NARRATIVE: CASE EVENT DATE: 20150822
